FAERS Safety Report 16454702 (Version 5)
Quarter: 2019Q4

REPORT INFORMATION
  Report Type: Report from Study
  Country: US (occurrence: US)
  Receive Date: 20190620
  Receipt Date: 20191119
  Transmission Date: 20200122
  Serious: Yes (Other)
  Sender: FDA-Public Use
  Company Number: PHEH2019US026048

PATIENT
  Age: 23 Year
  Sex: Female
  Weight: 78 kg

DRUGS (3)
  1. VITAMIN D3 [Concomitant]
     Active Substance: CHOLECALCIFEROL
     Indication: PRODUCT USED FOR UNKNOWN INDICATION
     Dosage: 50000 UNK, QW
     Route: 048
  2. GILENYA [Suspect]
     Active Substance: FINGOLIMOD HYDROCHLORIDE
     Indication: MULTIPLE SCLEROSIS
     Dosage: 0.5 MG, QD
     Route: 048
     Dates: start: 20190617, end: 20190617
  3. GILENYA [Suspect]
     Active Substance: FINGOLIMOD HYDROCHLORIDE
     Dosage: 0.5 MG, QD
     Route: 048
     Dates: start: 201907

REACTIONS (6)
  - Lymphocyte count decreased [Not Recovered/Not Resolved]
  - Headache [Recovered/Resolved]
  - Sleep disorder [Unknown]
  - White blood cell count decreased [Not Recovered/Not Resolved]
  - JC polyomavirus test positive [Unknown]
  - Paraesthesia [Unknown]

NARRATIVE: CASE EVENT DATE: 20190617
